FAERS Safety Report 8917511 (Version 1)
Quarter: 2012Q4

REPORT INFORMATION
  Report Type: Report from Study
  Country: DE (occurrence: DE)
  Receive Date: 20121120
  Receipt Date: 20121120
  Transmission Date: 20130627
  Serious: Yes (Hospitalization)
  Sender: FDA-Public Use
  Company Number: DE-BAYER-2012-114246

PATIENT
  Sex: Male
  Weight: 67 kg

DRUGS (3)
  1. SORAFENIB (RAF KINASE INHIBITOR) [Suspect]
     Indication: CARCINOMA HEPATOCELLULAR
     Dosage: 800 mg/day
     Route: 048
     Dates: start: 20110315, end: 20110501
  2. SORAFENIB (RAF KINASE INHIBITOR) [Suspect]
     Indication: CARCINOMA HEPATOCELLULAR
     Dosage: 400 mg/day
     Route: 048
     Dates: start: 20110524, end: 20120722
  3. SORAFENIB (RAF KINASE INHIBITOR) [Suspect]
     Indication: CARCINOMA HEPATOCELLULAR
     Dosage: 400 mg/day
     Route: 048
     Dates: start: 20120813

REACTIONS (1)
  - Skin ulcer [Not Recovered/Not Resolved]
